FAERS Safety Report 7323708-7 (Version None)
Quarter: 2011Q1

REPORT INFORMATION
  Report Type: 
  Country: None (occurrence: None)
  Receive Date: 20110301
  Receipt Date: 20110217
  Transmission Date: 20110831
  Serious: Yes (Other)
  Sender: FDA-Public Use
  Company Number: PHHY2010BR31861

PATIENT
  Sex: Female

DRUGS (1)
  1. RITALIN LA [Suspect]
     Indication: ATTENTION DEFICIT/HYPERACTIVITY DISORDER
     Dosage: 1 DF, QD
     Route: 048
     Dates: start: 20100514

REACTIONS (8)
  - TREMOR [None]
  - SUICIDAL IDEATION [None]
  - MALAISE [None]
  - MUSCLE SPASMS [None]
  - HALLUCINATION [None]
  - VISION BLURRED [None]
  - TACHYCARDIA [None]
  - INSOMNIA [None]
